FAERS Safety Report 7385204-0 (Version None)
Quarter: 2011Q1

REPORT INFORMATION
  Report Type: 
  Country: None (occurrence: None)
  Receive Date: 20110330
  Receipt Date: 20110124
  Transmission Date: 20110831
  Serious: No
  Sender: FDA-Public Use
  Company Number: US-MYLANLABS-2011S1000730

PATIENT
  Age: 85 Year
  Sex: Male

DRUGS (13)
  1. VITAMIN B-12 [Concomitant]
  2. PRAVASTATIN [Concomitant]
  3. TRAMADOL [Concomitant]
     Dosage: ONE OR TWO
  4. GABAPENTIN [Concomitant]
  5. NIFEDIPINE [Suspect]
     Indication: HYPERTENSION
     Route: 048
     Dates: start: 20101115, end: 20101123
  6. NIFEDIPINE [Suspect]
     Route: 048
     Dates: start: 20101201, end: 20101231
  7. CYMBALTA [Concomitant]
     Indication: NEUROPATHY PERIPHERAL
  8. VITAMIN D [Concomitant]
  9. TRIAZOLAM [Concomitant]
  10. GELATIN [Concomitant]
     Dosage: 10 GRAIN
  11. MELOXICAM [Concomitant]
  12. ASPIRIN [Concomitant]
  13. OMEPRAZOLE [Concomitant]

REACTIONS (2)
  - DRUG INEFFECTIVE [None]
  - BLOOD PRESSURE INCREASED [None]
